FAERS Safety Report 15301390 (Version 2)
Quarter: 2018Q3

REPORT INFORMATION
  Report Type: Report from Study
  Country: None (occurrence: US)
  Receive Date: 20180821
  Receipt Date: 20180918
  Transmission Date: 20181010
  Serious: Yes (Other)
  Sender: FDA-Public Use
  Company Number: US-ABBVIE-18K-163-2423721-00

PATIENT
  Sex: Female

DRUGS (1)
  1. HUMIRA [Suspect]
     Active Substance: ADALIMUMAB
     Indication: PSORIASIS
     Route: 058

REACTIONS (9)
  - Basal cell carcinoma [Unknown]
  - Hypothyroidism [Not Recovered/Not Resolved]
  - Intervertebral disc protrusion [Unknown]
  - Eyelid ptosis [Recovering/Resolving]
  - Spondylitis [Unknown]
  - Visual impairment [Unknown]
  - Spinal column stenosis [Not Recovered/Not Resolved]
  - Diabetes mellitus [Not Recovered/Not Resolved]
  - Amnesia [Unknown]
